FAERS Safety Report 12653737 (Version 1)
Quarter: 2016Q3

REPORT INFORMATION
  Report Type: Spontaneous
  Country: US (occurrence: US)
  Receive Date: 20160816
  Receipt Date: 20160816
  Transmission Date: 20161109
  Serious: No
  Sender: FDA-Public Use
  Company Number: US-BIOGEN-2016BI00277553

PATIENT
  Age: 51 Year
  Sex: Female

DRUGS (1)
  1. TECFIDERA [Suspect]
     Active Substance: DIMETHYL FUMARATE
     Indication: MULTIPLE SCLEROSIS
     Route: 048
     Dates: start: 20160519

REACTIONS (3)
  - Abdominal discomfort [Not Recovered/Not Resolved]
  - Menopause [Not Recovered/Not Resolved]
  - Vomiting [Recovered/Resolved]

NARRATIVE: CASE EVENT DATE: 2016
